FAERS Safety Report 26003640 (Version 1)
Quarter: 2025Q4

REPORT INFORMATION
  Report Type: Spontaneous
  Country: US (occurrence: US)
  Receive Date: 20251106
  Receipt Date: 20251106
  Transmission Date: 20260118
  Serious: No
  Sender: SANDOZ
  Company Number: US-SANDOZ-SDZ2025US082203

PATIENT
  Sex: Male

DRUGS (1)
  1. ADALIMUMAB [Suspect]
     Active Substance: ADALIMUMAB
     Indication: Product used for unknown indication
     Dosage: (ADALIMUMAB-ADAZ) 40MG INJECTION, FOR SUBCUTANEOUS USE IN PREFILLED PEN
     Route: 058

REACTIONS (2)
  - Device use issue [Unknown]
  - Device leakage [Unknown]
